FAERS Safety Report 7796727-4 (Version None)
Quarter: 2011Q4

REPORT INFORMATION
  Report Type: 
  Country: None (occurrence: None)
  Receive Date: 20111005
  Receipt Date: 20110926
  Transmission Date: 20120403
  Serious: Yes (Hospitalization, Other)
  Sender: FDA-Public Use
  Company Number: US-JNJFOC-20110810488

PATIENT
  Sex: Female

DRUGS (3)
  1. REMICADE [Suspect]
     Dosage: 2ND INDUCTION
     Route: 042
     Dates: start: 20110804
  2. REMICADE [Suspect]
     Indication: CROHN'S DISEASE
     Route: 042
     Dates: start: 20110818
  3. REMICADE [Suspect]
     Route: 042
     Dates: start: 20110819

REACTIONS (6)
  - ARTHRALGIA [None]
  - HYPERAEMIA [None]
  - TYPE IV HYPERSENSITIVITY REACTION [None]
  - WHITE BLOOD CELL COUNT DECREASED [None]
  - CHEST PAIN [None]
  - PYREXIA [None]
